FAERS Safety Report 13443467 (Version 1)
Quarter: 2017Q2

REPORT INFORMATION
  Report Type: Spontaneous
  Country: CA (occurrence: CA)
  Receive Date: 20170414
  Receipt Date: 20170414
  Transmission Date: 20170830
  Serious: No
  Sender: FDA-Public Use
  Company Number: CA-PIERREL PHARMA S.P.A.-2016PIR00036

PATIENT
  Sex: Female

DRUGS (1)
  1. ORABLOC [Suspect]
     Active Substance: ARTICAINE HYDROCHLORIDE\EPINEPHRINE BITARTRATE
     Indication: NERVE BLOCK
     Dosage: 1.7 ML, TWICE
     Route: 004
     Dates: start: 20161026, end: 20161026

REACTIONS (3)
  - Paraesthesia [Not Recovered/Not Resolved]
  - Neurotoxicity [Not Recovered/Not Resolved]
  - Injury associated with device [Recovered/Resolved]

NARRATIVE: CASE EVENT DATE: 20161026
